FAERS Safety Report 8815060 (Version 1)
Quarter: 2012Q4

REPORT INFORMATION
  Report Type: 
  Country: CH (occurrence: CH)
  Receive Date: 20120928
  Receipt Date: 20120928
  Transmission Date: 20130627
  Serious: Yes (Other)
  Sender: FDA-Public Use
  Company Number: CH-PFIZER INC-2012239855

PATIENT
  Age: 33 Year
  Sex: Female

DRUGS (2)
  1. ZOLOFT [Suspect]
     Indication: DEPRESSION
     Dosage: 50 mg, 1x/day
     Dates: start: 20120228
  2. TEMESTA [Suspect]
     Indication: DEPRESSION
     Dosage: UNK
     Dates: start: 20120215

REACTIONS (2)
  - Threatened labour [Unknown]
  - Depression [Unknown]
